FAERS Safety Report 5450954-X (Version None)
Quarter: 2007Q3

REPORT INFORMATION
  Report Type: 
  Country: None (occurrence: None)
  Receive Date: 20070911
  Receipt Date: 20070829
  Transmission Date: 20080115
  Serious: Yes (Hospitalization)
  Sender: FDA-Public Use
  Company Number: 17383

PATIENT
  Age: 59 Year
  Sex: Female

DRUGS (1)
  1. PACLITAXEL [Suspect]
     Indication: OVARIAN CANCER
     Dosage: 275 MG FREQ  IV
     Route: 042
     Dates: start: 20070713, end: 20070713

REACTIONS (4)
  - BACK PAIN [None]
  - BURNING SENSATION [None]
  - DYSPNOEA [None]
  - INFUSION RELATED REACTION [None]
